FAERS Safety Report 15327037 (Version 2)
Quarter: 2018Q4

REPORT INFORMATION
  Report Type: Report from Study
  Country: US (occurrence: US)
  Receive Date: 20180828
  Receipt Date: 20181205
  Transmission Date: 20190204
  Serious: Yes (Other)
  Sender: FDA-Public Use
  Company Number: US-BAYER-2018-157635

PATIENT
  Age: 64 Year
  Sex: Male

DRUGS (12)
  1. LUPRON DEPOT [Concomitant]
     Active Substance: LEUPROLIDE ACETATE
     Route: 030
  2. XOFIGO [Suspect]
     Active Substance: RADIUM RA-223 DICHLORIDE
     Indication: HORMONE-REFRACTORY PROSTATE CANCER
     Dosage: UNK
     Dates: start: 20180530, end: 20180626
  3. IMODIUM A-D [Concomitant]
     Active Substance: LOPERAMIDE HYDROCHLORIDE
  4. FAMOTIDINE. [Concomitant]
     Active Substance: FAMOTIDINE
  5. APRISO [Concomitant]
     Active Substance: MESALAMINE
     Dosage: 0.375 GM (4HR ORALLY EVERY)
     Route: 048
  6. PREDNISONE. [Concomitant]
     Active Substance: PREDNISONE
     Dosage: 10 MG QD (AKE WITH FOOD TO PREVENT)
     Route: 048
  7. LIALDA [Concomitant]
     Active Substance: MESALAMINE
     Route: 048
  8. XOFIGO [Suspect]
     Active Substance: RADIUM RA-223 DICHLORIDE
     Indication: PROSTATE CANCER
  9. XOFIGO [Suspect]
     Active Substance: RADIUM RA-223 DICHLORIDE
     Indication: BONE CANCER
  10. SIMVASTATIN. [Concomitant]
     Active Substance: SIMVASTATIN
     Route: 048
  11. ZYTIGA [Concomitant]
     Active Substance: ABIRATERONE ACETATE
     Route: 048
  12. COUMADIN [Concomitant]
     Active Substance: WARFARIN SODIUM
     Dosage: 7.5 MG DAILY
     Route: 048

REACTIONS (7)
  - Prostatic specific antigen increased [None]
  - Anaemia [None]
  - Blood count abnormal [None]
  - Deep vein thrombosis [None]
  - Haemoglobin decreased [None]
  - Off label use [None]
  - Product use issue [None]

NARRATIVE: CASE EVENT DATE: 20180820
